FAERS Safety Report 14069002 (Version 1)
Quarter: 2017Q4

REPORT INFORMATION
  Report Type: Spontaneous
  Country: CN (occurrence: CN)
  Receive Date: 20171010
  Receipt Date: 20171010
  Transmission Date: 20180321
  Serious: Yes (Hospitalization)
  Sender: FDA-Public Use
  Company Number: CN-BAYER-2017-188168

PATIENT
  Age: 58 Year
  Sex: Female
  Weight: 50 kg

DRUGS (2)
  1. BAYASPIRIN 100 MG [Suspect]
     Active Substance: ASPIRIN
     Indication: VERTEBROBASILAR INSUFFICIENCY
     Dosage: 0.1 G, QD
     Route: 048
     Dates: start: 20170811, end: 20170821
  2. LIPITOR [Suspect]
     Active Substance: ATORVASTATIN CALCIUM
     Indication: VERTEBROBASILAR INSUFFICIENCY
     Dosage: 20 MG, QD
     Route: 048
     Dates: start: 20170811, end: 20170821

REACTIONS (3)
  - Hepatic function abnormal [Recovering/Resolving]
  - Muscular weakness [Recovering/Resolving]
  - Pain in extremity [Recovering/Resolving]

NARRATIVE: CASE EVENT DATE: 20170821
